FAERS Safety Report 5137056-7 (Version None)
Quarter: 2006Q4

REPORT INFORMATION
  Report Type: 
  Country: None (occurrence: None)
  Receive Date: 20061030
  Receipt Date: 20061003
  Transmission Date: 20070319
  Serious: Yes (Other)
  Sender: FDA-Public Use
  Company Number: US-AMGEN-US195685

PATIENT
  Sex: Female
  Weight: 59 kg

DRUGS (10)
  1. ENBREL [Suspect]
     Indication: RHEUMATOID ARTHRITIS
     Dates: start: 20060418, end: 20060512
  2. PREDNISONE TAB [Concomitant]
     Route: 048
     Dates: start: 20060603, end: 20060621
  3. PREDNISONE TAB [Concomitant]
     Route: 048
     Dates: start: 20060418, end: 20060602
  4. ZITHROMAX [Concomitant]
     Route: 048
     Dates: start: 20060524, end: 20060524
  5. ZITHROMAX [Concomitant]
     Route: 048
     Dates: start: 20060525, end: 20060528
  6. GUAIFENESIN [Concomitant]
     Route: 048
     Dates: start: 20060524, end: 20060530
  7. CODEINE [Concomitant]
     Route: 048
     Dates: start: 20060524, end: 20060530
  8. TYLENOL [Concomitant]
     Route: 048
     Dates: start: 20060520, end: 20060521
  9. ROBITUSSIN-DM [Concomitant]
     Route: 048
     Dates: start: 20060518, end: 20060524
  10. UNSPECIFIED HERBAL PRODUCT [Concomitant]

REACTIONS (3)
  - ABORTION SPONTANEOUS [None]
  - DRUG EXPOSURE DURING PREGNANCY [None]
  - SINUSITIS [None]
